FAERS Safety Report 4316036-5 (Version None)
Quarter: 2004Q1

REPORT INFORMATION
  Report Type: 
  Country: None (occurrence: None)
  Receive Date: 20040311
  Receipt Date: 20040225
  Transmission Date: 20041129
  Serious: Yes (Other)
  Sender: FDA-Public Use
  Company Number: HQWYE606305MAR04

PATIENT
  Age: 77 Year
  Sex: Female

DRUGS (6)
  1. SERAX [Suspect]
     Dosage: 10 MG (OVERDOSE, UNSPEC)
     Route: 048
  2. CLOZAPINE [Concomitant]
     Dosage: 100 MG (OVERDOSE AMOUNT)
     Route: 048
  3. NORFLOXACIN [Suspect]
     Dosage: 400 MG (OVERDOSE AMOUNT)
     Route: 048
  4. CISORDINOL (CLOPENTHIXOL HYDROCHLORIDE) [Concomitant]
  5. PREDNISOLONE [Concomitant]
  6. CARBAMAZEPINE [Concomitant]

REACTIONS (3)
  - ACCIDENTAL OVERDOSE [None]
  - COMA [None]
  - MEDICATION ERROR [None]
